FAERS Safety Report 13136153 (Version 1)
Quarter: 2017Q1

REPORT INFORMATION
  Report Type: Spontaneous
  Country: DE (occurrence: DE)
  Receive Date: 20170121
  Receipt Date: 20170121
  Transmission Date: 20170428
  Serious: Yes (Other)
  Sender: FDA-Public Use
  Company Number: DE-ACCORD-047533

PATIENT
  Age: 75 Year
  Sex: Female

DRUGS (4)
  1. CISPLATIN. [Suspect]
     Active Substance: CISPLATIN
     Indication: OVARIAN EPITHELIAL CANCER
     Route: 033
     Dates: start: 201410, end: 201608
  2. CARBOPLATIN. [Suspect]
     Active Substance: CARBOPLATIN
     Indication: OVARIAN EPITHELIAL CANCER
     Dosage: AREA UNDER THE CURVE (AUC) 3 ON DAY 2 AFTER EACH PIPAC
     Route: 042
     Dates: start: 201605
  3. DOXORUBICIN [Suspect]
     Active Substance: DOXORUBICIN
     Indication: OVARIAN EPITHELIAL CANCER
     Route: 033
     Dates: start: 201410, end: 201608
  4. TAMOXIFEN [Suspect]
     Active Substance: TAMOXIFEN
     Indication: OVARIAN EPITHELIAL CANCER
     Dates: start: 201510, end: 201605

REACTIONS (4)
  - Pyrexia [Unknown]
  - Product use issue [Unknown]
  - Pleural effusion [Unknown]
  - Abdominal pain [Unknown]
